FAERS Safety Report 25467928 (Version 1)
Quarter: 2025Q2

REPORT INFORMATION
  Report Type: Spontaneous
  Country: US (occurrence: US)
  Receive Date: 20250623
  Receipt Date: 20250623
  Transmission Date: 20250717
  Serious: Yes (Hospitalization, Other)
  Sender: ANI
  Company Number: US-ANIPHARMA-023267

PATIENT
  Sex: Male

DRUGS (1)
  1. DEXTROMETHORPHAN HYDROBROMIDE AND PROMETHAZINE HYDROCHLORIDE [Suspect]
     Active Substance: DEXTROMETHORPHAN HYDROBROMIDE\PROMETHAZINE HYDROCHLORIDE
     Indication: Cough
     Route: 048

REACTIONS (1)
  - Urinary retention [Recovered/Resolved]
